FAERS Safety Report 7947165-2 (Version None)
Quarter: 2011Q4

REPORT INFORMATION
  Report Type: 
  Country: None (occurrence: None)
  Receive Date: 20111129
  Receipt Date: 20111125
  Transmission Date: 20120403
  Serious: Yes (Congenital Anomaly)
  Sender: FDA-Public Use
  Company Number: DK-ASTRAZENECA-2008SE01423

PATIENT
  Age: 0 Year
  Sex: Female

DRUGS (6)
  1. ZOLOFT [Suspect]
     Indication: DEPRESSION
     Route: 064
     Dates: start: 20070710, end: 20080205
  2. METOPROLOL SUCCINATE [Suspect]
     Indication: ARRHYTHMIA
     Route: 064
     Dates: start: 20071023
  3. EFFEXOR [Suspect]
     Indication: DEPRESSION
     Route: 064
     Dates: start: 20040101, end: 20070710
  4. SEROQUEL [Suspect]
     Indication: DEPRESSION
     Route: 064
     Dates: start: 20040101, end: 20070710
  5. EYE-Q [Suspect]
  6. LAMICTAL [Suspect]
     Indication: DEPRESSION
     Route: 064
     Dates: start: 20040101, end: 20070710

REACTIONS (2)
  - FOETAL GROWTH RESTRICTION [None]
  - BRAIN MALFORMATION [None]
